FAERS Safety Report 9587842 (Version 1)
Quarter: 2013Q4

REPORT INFORMATION
  Report Type: Spontaneous
  Country: CA (occurrence: CA)
  Receive Date: 20131003
  Receipt Date: 20131003
  Transmission Date: 20140711
  Serious: Yes (Other)
  Sender: FDA-Public Use
  Company Number: CA-009507513-1310CAN000640

PATIENT
  Age: 39 Year
  Sex: Male

DRUGS (1)
  1. NASONEX [Suspect]
     Indication: PRODUCT USED FOR UNKNOWN INDICATION
     Dosage: 100 MICROGRAM, QD
     Route: 065

REACTIONS (4)
  - VIIth nerve paralysis [Unknown]
  - Dry eye [Unknown]
  - Glossodynia [Unknown]
  - Paraesthesia [Unknown]
